FAERS Safety Report 8455746-5 (Version None)
Quarter: 2012Q2

REPORT INFORMATION
  Report Type: 
  Country: None (occurrence: None)
  Receive Date: 20120621
  Receipt Date: 20120619
  Transmission Date: 20120825
  Serious: No
  Sender: FDA-Public Use
  Company Number: US-PFIZER INC-2012132319

PATIENT
  Sex: Male
  Weight: 160 kg

DRUGS (4)
  1. GENOTROPIN [Suspect]
     Indication: METABOLIC DISORDER
  2. INSULIN [Concomitant]
     Dosage: UNK, 3X/DAY
  3. GENOTROPIN [Suspect]
     Indication: OFF LABEL USE
     Dosage: UNK, 1X/DAY
     Route: 058
     Dates: start: 20120501
  4. GENOTROPIN [Suspect]
     Indication: BLOOD GLUCOSE INCREASED

REACTIONS (2)
  - INJECTION SITE HAEMORRHAGE [None]
  - CIRCUMSTANCE OR INFORMATION CAPABLE OF LEADING TO MEDICATION ERROR [None]
